FAERS Safety Report 9027917 (Version 1)
Quarter: 2013Q1

REPORT INFORMATION
  Report Type: Spontaneous
  Country: US (occurrence: None)
  Receive Date: 20130114
  Receipt Date: 20130114
  Transmission Date: 20140127
  Serious: No
  Sender: FDA-Public Use
  Company Number: None

PATIENT
  Sex: Female
  Weight: 77.11 kg

DRUGS (4)
  1. RISPERDOL 1 MG. TO .5 MG . [Suspect]
  2. MUSCLE RELAXER [Concomitant]
  3. IBUPROFEN [Concomitant]
  4. PSEUDOEPHEDRINE [Concomitant]

REACTIONS (5)
  - Intervertebral disc degeneration [None]
  - Parkinsonism [None]
  - Tardive dyskinesia [None]
  - Speech disorder [None]
  - Dyspnoea [None]
